FAERS Safety Report 20454100 (Version 1)
Quarter: 2022Q1

REPORT INFORMATION
  Report Type: Spontaneous
  Country: US (occurrence: None)
  Receive Date: 20220209
  Receipt Date: 20220209
  Transmission Date: 20220423
  Serious: Yes (Other)
  Sender: FDA-Public Use
  Company Number: None

PATIENT
  Age: 65 Year
  Sex: Male

DRUGS (2)
  1. REGLAN [Suspect]
     Active Substance: METOCLOPRAMIDE HYDROCHLORIDE
     Dosage: FREQUENCY : 4 TIMES A DAY;?
     Route: 040
  2. OLANZAPINE [Suspect]
     Active Substance: OLANZAPINE
     Dosage: FREQUENCY : 3 TIMES A DAY;?

REACTIONS (2)
  - Neuroleptic malignant syndrome [None]
  - Pyrexia [None]

NARRATIVE: CASE EVENT DATE: 20220203
